FAERS Safety Report 17398998 (Version 2)
Quarter: 2020Q1

REPORT INFORMATION
  Report Type: Spontaneous
  Country: CO (occurrence: CO)
  Receive Date: 20200210
  Receipt Date: 20200219
  Transmission Date: 20200409
  Serious: Yes (Hospitalization, Other)
  Sender: FDA-Public Use
  Company Number: CO-BIOMARINAP-CO-2020-128353

PATIENT
  Age: 6 Year
  Sex: Male

DRUGS (1)
  1. BRINEURA [Suspect]
     Active Substance: CERLIPONASE ALFA
     Indication: NEURONAL CEROID LIPOFUSCINOSIS
     Dosage: 300 MILLIGRAM
     Route: 065
     Dates: start: 20190412

REACTIONS (10)
  - Fatigue [Unknown]
  - Abnormal behaviour [Unknown]
  - Ocular hyperaemia [Unknown]
  - Seizure [Recovered/Resolved]
  - Asthenia [Unknown]
  - Erythema [Unknown]
  - Pain in extremity [Unknown]
  - Headache [Unknown]
  - Loss of consciousness [Unknown]
  - Pyrexia [Recovered/Resolved]

NARRATIVE: CASE EVENT DATE: 20200204
